FAERS Safety Report 8911552 (Version 4)
Quarter: 2013Q4

REPORT INFORMATION
  Report Type: Spontaneous
  Country: US (occurrence: US)
  Receive Date: 20121116
  Receipt Date: 20131004
  Transmission Date: 20140711
  Serious: No
  Sender: FDA-Public Use
  Company Number: US-PFIZER INC-2012286127

PATIENT
  Age: 57 Year
  Sex: Female
  Weight: 65.76 kg

DRUGS (10)
  1. LYRICA [Suspect]
     Indication: PAIN
     Dosage: UNK
     Dates: start: 2008
  2. LYRICA [Suspect]
     Indication: FIBROMYALGIA
     Dosage: 150 MG, 3X/DAY
  3. LYRICA [Suspect]
     Dosage: 75 MG AS NEED (3-4 TIMES A DAY)
     Dates: end: 2012
  4. EXALGO [Concomitant]
     Indication: PAIN
     Dosage: 12 MG,DAILY
  5. EXALGO [Concomitant]
     Indication: FIBROMYALGIA
  6. WELLBUTRIN XL [Concomitant]
     Indication: FIBROMYALGIA
     Dosage: 300 MG, DAILY
  7. PROZAC [Concomitant]
     Dosage: 20 MG, UNK
  8. SYNTHROID [Concomitant]
     Dosage: 75 UG, UNK
  9. OTC ZANTAC [Concomitant]
     Dosage: 150 MG, UNK
  10. AMBIEN [Concomitant]
     Indication: POLYNEUROPATHY
     Dosage: 5MG AS NEEDED (HS)

REACTIONS (11)
  - Circumstance or information capable of leading to medication error [Unknown]
  - Weight increased [Unknown]
  - Local swelling [Unknown]
  - Withdrawal syndrome [Unknown]
  - Nausea [Recovering/Resolving]
  - Vomiting [Unknown]
  - Feeling abnormal [Unknown]
  - Gastric disorder [Recovering/Resolving]
  - Decreased appetite [Recovering/Resolving]
  - Pain [Unknown]
  - Gallbladder disorder [Unknown]
